FAERS Safety Report 23909788 (Version 5)
Quarter: 2025Q4

REPORT INFORMATION
  Report Type: Spontaneous
  Country: US (occurrence: US)
  Receive Date: 20240528
  Receipt Date: 20251009
  Transmission Date: 20260117
  Serious: No
  Sender: BRISTOL-MYERS SQUIBB COMPANY
  Company Number: US-BRISTOL-MYERS SQUIBB COMPANY-2024-084820

PATIENT
  Age: 68 Year
  Sex: Male

DRUGS (4)
  1. POMALYST [Suspect]
     Active Substance: POMALIDOMIDE
     Indication: Plasma cell myeloma
  2. POMALYST [Suspect]
     Active Substance: POMALIDOMIDE
     Dosage: FREQ: CYCLIC?STRENGTH: 3MG
  3. NINLARO [Suspect]
     Active Substance: IXAZOMIB CITRATE
     Indication: Product used for unknown indication
  4. NINLARO [Suspect]
     Active Substance: IXAZOMIB CITRATE

REACTIONS (7)
  - Fatigue [Unknown]
  - Back pain [Unknown]
  - Rash [Unknown]
  - Hypersensitivity [Unknown]
  - Skin irritation [Unknown]
  - Product prescribing issue [Unknown]
  - Therapy interrupted [Unknown]
